FAERS Safety Report 14964597 (Version 1)
Quarter: 2018Q2

REPORT INFORMATION
  Report Type: Spontaneous
  Country: HU (occurrence: HU)
  Receive Date: 20180601
  Receipt Date: 20180601
  Transmission Date: 20180711
  Serious: Yes (Other)
  Sender: FDA-Public Use
  Company Number: HU-JNJFOC-20180535024

PATIENT
  Age: 60 Year
  Sex: Female

DRUGS (1)
  1. IBRUTINIB [Suspect]
     Active Substance: IBRUTINIB
     Indication: CHRONIC LYMPHOCYTIC LEUKAEMIA
     Route: 048
     Dates: start: 201506

REACTIONS (4)
  - Cutaneous symptom [Unknown]
  - Lymphocytosis [Unknown]
  - Haemolysis [Recovered/Resolved]
  - Hepatic enzyme increased [Recovered/Resolved]
